FAERS Safety Report 24694912 (Version 1)
Quarter: 2024Q4

REPORT INFORMATION
  Report Type: Spontaneous
  Country: US (occurrence: None)
  Receive Date: 20241203
  Receipt Date: 20241203
  Transmission Date: 20250115
  Serious: Yes (Other)
  Sender: Public
  Company Number: None

PATIENT
  Age: 60 Year
  Sex: Male

DRUGS (1)
  1. ADBRY [Suspect]
     Active Substance: TRALOKINUMAB-LDRM
     Indication: Dermatitis atopic
     Dosage: OTHER QUANTITY : 600MG AS LOADING DOSE THE 300MG;?OTHER FREQUENCY : 600MG AS LOADING DOSE;?
     Route: 058
     Dates: start: 20241106, end: 20241119

REACTIONS (3)
  - Swelling face [None]
  - Erythema [None]
  - Post procedural complication [None]

NARRATIVE: CASE EVENT DATE: 20241106
